FAERS Safety Report 19101420 (Version 3)
Quarter: 2021Q3

REPORT INFORMATION
  Report Type: Spontaneous
  Country: US (occurrence: US)
  Receive Date: 20210407
  Receipt Date: 20210902
  Transmission Date: 20211014
  Serious: Yes (Hospitalization, Other)
  Sender: FDA-Public Use
  Company Number: US-TILLOMED LABORATORIES LTD.-2021-EPL-001017

PATIENT
  Age: 40 Year
  Sex: Female

DRUGS (7)
  1. AMIKACIN SULFATE. [Suspect]
     Active Substance: AMIKACIN SULFATE
     Indication: MYCOBACTERIAL INFECTION
     Dosage: 25 MILLIGRAM/KILOGRAM, 1 DOSE PER3 W
     Route: 042
     Dates: start: 2016
  2. CEFOXITIN [Suspect]
     Active Substance: CEFOXITIN SODIUM
     Indication: MYCOBACTERIAL INFECTION
     Dosage: 2 GRAM, 1 DOSE PER 8HRS
     Dates: start: 2016
  3. CIPROFLOXACIN. [Suspect]
     Active Substance: CIPROFLOXACIN
     Indication: MYCOBACTERIAL INFECTION
     Dosage: 750 MILLIGRAM, 1 DOSE PER 12HR
     Dates: start: 2016, end: 2016
  4. CIPROFLOXACIN. [Concomitant]
     Active Substance: CIPROFLOXACIN
     Indication: MYCOBACTERIAL INFECTION
     Dosage: 750 MILLIGRAM FOR 12 HOUR
     Dates: start: 2016
  5. DOXYCYCLINE. [Suspect]
     Active Substance: DOXYCYCLINE
     Indication: MYCOBACTERIAL INFECTION
     Dosage: 100 MILLIGRAM FOR 12 HOUR
     Dates: start: 2016, end: 2016
  6. CILASTATIN, IMIPENEM [Suspect]
     Active Substance: CILASTATIN SODIUM\IMIPENEM
     Indication: MYCOBACTERIAL INFECTION
     Dosage: UNK
     Dates: start: 2016, end: 2016
  7. VENLAFAXINE [Concomitant]
     Active Substance: VENLAFAXINE HYDROCHLORIDE
     Indication: DEPRESSION

REACTIONS (5)
  - Hepatic enzyme increased [Recovered/Resolved]
  - Off label use [Unknown]
  - Nausea [Unknown]
  - Thrombocytopenia [Recovered/Resolved]
  - Drug reaction with eosinophilia and systemic symptoms [Recovered/Resolved]

NARRATIVE: CASE EVENT DATE: 2016
